FAERS Safety Report 4529294-9 (Version None)
Quarter: 2004Q4

REPORT INFORMATION
  Report Type: 
  Country: None (occurrence: None)
  Receive Date: 20041202
  Receipt Date: 20040831
  Transmission Date: 20050328
  Serious: No
  Sender: FDA-Public Use
  Company Number: 200420434BWH

PATIENT
  Age: 36 Year
  Sex: Male

DRUGS (4)
  1. LEVITRA [Suspect]
     Indication: ERECTILE DYSFUNCTION
     Dosage: 10 MG, ONCE, ORAL; SEE IMAGE
     Route: 048
     Dates: start: 20040910, end: 20040912
  2. LEVITRA [Suspect]
     Indication: ERECTILE DYSFUNCTION
     Dosage: 10 MG, ONCE, ORAL; SEE IMAGE
     Route: 048
     Dates: start: 20040830
  3. EFFEXOR XR [Concomitant]
  4. LIPITOR [Concomitant]

REACTIONS (4)
  - DYSPEPSIA [None]
  - FEELING JITTERY [None]
  - FLUSHING [None]
  - HEADACHE [None]
